FAERS Safety Report 7773124-9 (Version None)
Quarter: 2011Q3

REPORT INFORMATION
  Report Type: 
  Country: None (occurrence: None)
  Receive Date: 20110922
  Receipt Date: 20110413
  Transmission Date: 20111222
  Serious: No
  Sender: FDA-Public Use
  Company Number: US-ASTRAZENECA-2011SE21561

PATIENT
  Age: 16492 Day
  Sex: Male
  Weight: 108.4 kg

DRUGS (7)
  1. LOPID [Concomitant]
     Indication: BLOOD TRIGLYCERIDES INCREASED
  2. OMACOR [Concomitant]
     Indication: HYPERTRIGLYCERIDAEMIA
     Dates: start: 20070125
  3. SEROQUEL [Suspect]
     Dosage: 300 MG TWO QPM
     Route: 048
     Dates: start: 20070125
  4. LITHIUM [Concomitant]
     Dates: start: 20070125
  5. LOPID [Concomitant]
     Indication: HYPERTRIGLYCERIDAEMIA
  6. RISPERDAL [Concomitant]
     Dates: start: 20070125
  7. EFFEXOR [Concomitant]
     Dosage: 150 MG TWO QAM
     Dates: start: 20070125

REACTIONS (2)
  - TYPE 2 DIABETES MELLITUS [None]
  - OBESITY [None]
